FAERS Safety Report 6030046-1 (Version None)
Quarter: 2009Q1

REPORT INFORMATION
  Report Type: 
  Country: None (occurrence: None)
  Receive Date: 20090105
  Receipt Date: 20090105
  Transmission Date: 20090719
  Serious: No
  Sender: FDA-Public Use
  Company Number: None

PATIENT
  Sex: Female
  Weight: 101.36 kg

DRUGS (3)
  1. SIMVASTATIN [Suspect]
     Dosage: 40MG TABLET 40 MG QHS ORAL
     Dates: start: 20081105, end: 20090102
  2. CELEXA [Concomitant]
  3. HYDROQUINONE [Concomitant]

REACTIONS (1)
  - MYALGIA [None]
